FAERS Safety Report 9739533 (Version 1)
Quarter: 2013Q4

REPORT INFORMATION
  Report Type: Spontaneous
  Country: GB (occurrence: GB)
  Receive Date: 20131209
  Receipt Date: 20131209
  Transmission Date: 20140711
  Serious: Yes (Hospitalization)
  Sender: FDA-Public Use
  Company Number: GB-WATSON-2013-22529

PATIENT
  Age: 61 Year
  Sex: Female
  Weight: 60 kg

DRUGS (10)
  1. DOXORUBICIN (UNKNOWN) [Suspect]
     Indication: PLASMA CELL MYELOMA
     Dosage: 9 MG/M2. LIPOSOME INJECTION, D1,4, STOPPED ON DAY 21 OF CYCLE
     Route: 042
  2. DEXAMETHASONE (UNKNOWN) [Suspect]
     Indication: PLASMA CELL MYELOMA
     Dosage: 40 MG D1-4, 8-11, 15, STOPPED ON DAY 21 OF CYCLE
     Route: 065
  3. DEXAMETHASONE (UNKNOWN) [Suspect]
     Dosage: 200 MG, UNKNOWN
     Route: 065
     Dates: start: 201310
  4. VELCADE [Suspect]
     Indication: PLASMA CELL MYELOMA
     Dosage: 1 MG/M2 D1,4,5,11, STOPPED ON DAY 21 OF CYCLE
     Route: 065
  5. ACICLOVIR [Concomitant]
     Indication: CHEMOTHERAPY
     Dosage: DOSAGE FORM: UNSPECIFIED
     Route: 048
     Dates: start: 20130918
  6. ALLOPURINOL [Concomitant]
     Indication: PRODUCT USED FOR UNKNOWN INDICATION
     Dosage: 100 MG, DAILY, SUPPORT THERAPY
     Route: 048
     Dates: start: 20130918, end: 20131110
  7. CO-TRIMOXAZOLE [Concomitant]
     Indication: PROPHYLAXIS
     Dosage: 480 MG, 1/ THREE WEEKS
     Route: 048
     Dates: start: 20130918
  8. ENOXAPARIN [Concomitant]
     Indication: PROPHYLAXIS
     Dosage: 20 MG, DAILY
     Route: 058
  9. LENALIDOMIDE [Concomitant]
     Indication: CHEMOTHERAPY
     Dosage: 5 MG, DAILY
     Route: 048
     Dates: start: 20131031
  10. RANITIDINE [Concomitant]
     Indication: PROPHYLAXIS
     Dosage: 15 MG, BID
     Route: 048
     Dates: start: 20130915

REACTIONS (3)
  - Hypercalcaemia [Unknown]
  - Upper respiratory tract infection [Unknown]
  - Drug ineffective [Unknown]
